FAERS Safety Report 6089570-8 (Version None)
Quarter: 2009Q1

REPORT INFORMATION
  Report Type: 
  Country: None (occurrence: None)
  Receive Date: 20090219
  Receipt Date: 20090219
  Transmission Date: 20090719
  Serious: No
  Sender: FDA-Public Use
  Company Number: None

PATIENT
  Age: 18 Year
  Sex: Male
  Weight: 54.8852 kg

DRUGS (12)
  1. METHYLPHENIDATE SR [Suspect]
     Dosage: 54MG Q DAY PO
     Route: 048
     Dates: start: 20080404, end: 20080624
  2. RISPERDAL [Concomitant]
  3. RANITIDINE [Concomitant]
  4. DEPAKOTE [Concomitant]
  5. CONCERTA [Concomitant]
  6. DIPHENHYDRAMINE HCL [Concomitant]
  7. AUGMENTIN [Concomitant]
  8. TRAZODONE HCL [Concomitant]
  9. CEFTRIAXONE [Concomitant]
  10. HYDROXYZINE [Concomitant]
  11. AURALGAN [Concomitant]
  12. RISP CONSTA [Concomitant]

REACTIONS (2)
  - MENTAL STATUS CHANGES [None]
  - NECK PAIN [None]
